FAERS Safety Report 4404423-6 (Version None)
Quarter: 2004Q3

REPORT INFORMATION
  Report Type: 
  Country: None (occurrence: None)
  Receive Date: 20040720
  Receipt Date: 20040707
  Transmission Date: 20050211
  Serious: Yes (Other)
  Sender: FDA-Public Use
  Company Number: 2003125459

PATIENT
  Sex: Male
  Weight: 71.2147 kg

DRUGS (6)
  1. NARDIL [Suspect]
     Indication: BIPOLAR DISORDER
     Dosage: 15 MG, ORAL
     Route: 048
     Dates: start: 19860101
  2. PILOCARPINE HYDROCHLORIDE [Suspect]
     Indication: ILL-DEFINED DISORDER
  3. ESTRADIOL [Suspect]
     Indication: GROIN PAIN
     Dosage: TRANSDERMAL
     Route: 062
     Dates: start: 20040101, end: 20040101
  4. LITHIUM CARBONATE [Concomitant]
  5. NOVOTHYRAL (LEVOTHYROXINE SODIUM, LIOTHYRONINE SODIUM) [Concomitant]
  6. QUETIAPINE FUMARATE (QUETIAPINE FUMARATE) [Concomitant]

REACTIONS (8)
  - BACTERIAL INFECTION [None]
  - DRUG DEPENDENCE [None]
  - DRUG INTERACTION [None]
  - FEELING ABNORMAL [None]
  - GROIN PAIN [None]
  - HYPERTENSIVE CRISIS [None]
  - INSOMNIA [None]
  - TOOTH LOSS [None]
